FAERS Safety Report 16537246 (Version 7)
Quarter: 2020Q1

REPORT INFORMATION
  Report Type: Report from Study
  Country: US (occurrence: US)
  Receive Date: 20190707
  Receipt Date: 20200317
  Transmission Date: 20200409
  Serious: Yes (Hospitalization, Other)
  Sender: FDA-Public Use
  Company Number: PHHY2019US153156

PATIENT
  Age: 62 Year
  Sex: Male
  Weight: 82 kg

DRUGS (9)
  1. KYMRIAH [Suspect]
     Active Substance: TISAGENLECLEUCEL
     Indication: DIFFUSE LARGE B-CELL LYMPHOMA
     Dosage: UNK UNK, ONCE/SINGLE
     Route: 041
     Dates: start: 2019
  2. FLUDARABINE [Concomitant]
     Active Substance: FLUDARABINE PHOSPHATE
     Dosage: 25 MG/M2X 2.03 M2
     Route: 065
     Dates: start: 20181229
  3. FLUDARABINE [Concomitant]
     Active Substance: FLUDARABINE PHOSPHATE
     Dosage: 25 MG/M2X 2.03 M2
     Route: 065
     Dates: start: 20181230
  4. FLUDARABINE [Concomitant]
     Active Substance: FLUDARABINE PHOSPHATE
     Dosage: 25 MG/M2X 2.03 M2
     Route: 065
     Dates: start: 20181231
  5. CYCLOPHOSPHAMIDE. [Concomitant]
     Active Substance: CYCLOPHOSPHAMIDE
     Indication: CHEMOTHERAPY
     Dosage: UNK
     Route: 065
  6. CYTOXAN [Concomitant]
     Active Substance: CYCLOPHOSPHAMIDE
     Indication: PRODUCT USED FOR UNKNOWN INDICATION
     Dosage: 250 MG/M2X 2.03 M2
     Route: 065
     Dates: start: 20181229
  7. FLUDARABINE [Concomitant]
     Active Substance: FLUDARABINE PHOSPHATE
     Indication: CHEMOTHERAPY
     Dosage: UNK
     Route: 065
  8. CYTOXAN [Concomitant]
     Active Substance: CYCLOPHOSPHAMIDE
     Dosage: 250 MG/M2X 2.03 M2
     Route: 065
     Dates: start: 20181230
  9. CYTOXAN [Concomitant]
     Active Substance: CYCLOPHOSPHAMIDE
     Dosage: 250 MG/M2X 2.03 M2
     Route: 065
     Dates: start: 20181231

REACTIONS (12)
  - Rhinorrhoea [Recovered/Resolved]
  - Cough [Recovered/Resolved]
  - C-reactive protein increased [Unknown]
  - Cough [Recovered/Resolved]
  - Lymphocyte count decreased [Unknown]
  - Cytokine release syndrome [Recovered/Resolved]
  - Fatigue [Unknown]
  - Human rhinovirus test positive [Unknown]
  - Malaise [Recovered/Resolved]
  - Upper respiratory tract infection [Recovered/Resolved]
  - Pyrexia [Unknown]
  - Hypogammaglobulinaemia [Unknown]

NARRATIVE: CASE EVENT DATE: 20190106
